FAERS Safety Report 15367064 (Version 1)
Quarter: 2018Q3

REPORT INFORMATION
  Report Type: Report from Study
  Country: RO (occurrence: RO)
  Receive Date: 20180910
  Receipt Date: 20180910
  Transmission Date: 20181010
  Serious: Yes (Death)
  Sender: FDA-Public Use
  Company Number: RO-ASTELLAS-2018US023545

PATIENT
  Sex: Female

DRUGS (1)
  1. ERLOTINIB [Suspect]
     Active Substance: ERLOTINIB
     Indication: LUNG NEOPLASM MALIGNANT
     Dosage: FREQUENCY: DAILY
     Route: 048
     Dates: end: 20180228

REACTIONS (1)
  - Death [Fatal]

NARRATIVE: CASE EVENT DATE: 201805
